FAERS Safety Report 9748394 (Version 4)
Quarter: 2014Q2

REPORT INFORMATION
  Report Type: Spontaneous
  Country: IT (occurrence: None)
  Receive Date: 20131206
  Receipt Date: 20140411
  Transmission Date: 20141212
  Serious: Yes (Hospitalization)
  Sender: FDA-Public Use
  Company Number: AUR-APL-2013-10189

PATIENT
  Age: 59 Year
  Sex: Male

DRUGS (6)
  1. AMOXICILLIN [Suspect]
     Indication: PNEUMONITIS
     Dosage: 1 DOSAGE FORMS (1 DOSAGE FORMS, 1 IN 1 D), ORAL
     Route: 048
     Dates: start: 20131112, end: 20131115
  2. SINTROM (ACENOCOUMAROL) [Suspect]
     Indication: DEEP VEIN THROMBOSIS
     Dosage: 4 MG (4 MG, 1 IN 1 D), ORAL
     Route: 048
     Dates: start: 20060101, end: 20131116
  3. EFEXOR [Concomitant]
  4. SEQUACOR [Concomitant]
  5. PARIET [Concomitant]
  6. ALFUZOSIN HYDROCHLORIDE [Concomitant]

REACTIONS (10)
  - Haemoptysis [None]
  - Aspartate aminotransferase increased [None]
  - Alanine aminotransferase increased [None]
  - Haemoglobin decreased [None]
  - International normalised ratio increased [None]
  - Red blood cell count decreased [None]
  - Haemorrhage [None]
  - Pneumonitis [None]
  - Drug-induced liver injury [None]
  - Overdose [None]
